FAERS Safety Report 11692086 (Version 2)
Quarter: 2016Q1

REPORT INFORMATION
  Report Type: Spontaneous
  Country: FR (occurrence: FR)
  Receive Date: 20151103
  Receipt Date: 20160314
  Transmission Date: 20160525
  Serious: Yes (Hospitalization, Other)
  Sender: FDA-Public Use
  Company Number: FR-PFIZER INC-2015355316

PATIENT
  Sex: Female
  Weight: 68 kg

DRUGS (1)
  1. RHINADVIL [Suspect]
     Active Substance: IBUPROFEN\PSEUDOEPHEDRINE HYDROCHLORIDE
     Indication: NASOPHARYNGITIS
     Dosage: 3 TO 4 TABLETS PER DAY
     Dates: start: 201506

REACTIONS (3)
  - Palpitations [Recovering/Resolving]
  - Irritability [Recovering/Resolving]
  - Thrombotic stroke [Recovering/Resolving]

NARRATIVE: CASE EVENT DATE: 2015
